FAERS Safety Report 7545785-0 (Version None)
Quarter: 2011Q2

REPORT INFORMATION
  Report Type: 
  Country: None (occurrence: None)
  Receive Date: 20110524
  Receipt Date: 20110209
  Transmission Date: 20111010
  Serious: No
  Sender: FDA-Public Use
  Company Number: 027168

PATIENT
  Sex: Female
  Weight: 65.7 kg

DRUGS (5)
  1. ENTOCORT EC [Concomitant]
  2. CIMZIA [Suspect]
  3. PROZAC [Concomitant]
  4. CIMZIA [Suspect]
     Indication: CROHN'S DISEASE
     Dosage: (800 MG 1X/2 WEEKS SUBCUTANEOUS)
     Route: 058
     Dates: start: 20110208, end: 20110208
  5. ORTHO TRI-CYCLEN LO [Concomitant]

REACTIONS (6)
  - DIZZINESS [None]
  - INCORRECT DOSE ADMINISTERED [None]
  - INFLUENZA LIKE ILLNESS [None]
  - ARTHRALGIA [None]
  - ANXIETY [None]
  - FEAR OF NEEDLES [None]
